FAERS Safety Report 8064899-2 (Version None)
Quarter: 2012Q1

REPORT INFORMATION
  Report Type: 
  Country: None (occurrence: None)
  Receive Date: 20120124
  Receipt Date: 20120113
  Transmission Date: 20120608
  Serious: No
  Sender: FDA-Public Use
  Company Number: US-BIOGENIDEC-2012BI001663

PATIENT
  Sex: Female

DRUGS (2)
  1. TYSABRI [Suspect]
     Indication: MULTIPLE SCLEROSIS
     Route: 042
     Dates: start: 20071213, end: 20080616
  2. TYSABRI [Suspect]
     Route: 042
     Dates: start: 20110309

REACTIONS (4)
  - MEMORY IMPAIRMENT [None]
  - STRESS [None]
  - PAIN [None]
  - MUSCULOSKELETAL STIFFNESS [None]
